FAERS Safety Report 16037186 (Version 1)
Quarter: 2019Q1

REPORT INFORMATION
  Report Type: Spontaneous
  Country: US (occurrence: US)
  Receive Date: 20190305
  Receipt Date: 20190305
  Transmission Date: 20190418
  Serious: Yes (Death, Other)
  Sender: FDA-Public Use
  Company Number: US-ASTRAZENECA-2019SE35480

PATIENT
  Age: 41 Year
  Sex: Female

DRUGS (4)
  1. QUETIAPINE. [Suspect]
     Active Substance: QUETIAPINE
     Route: 048
  2. FENTANYL. [Suspect]
     Active Substance: FENTANYL
     Route: 065
  3. GABAPENTIN. [Concomitant]
     Active Substance: GABAPENTIN
  4. CLONAZEPAM. [Concomitant]
     Active Substance: CLONAZEPAM

REACTIONS (3)
  - Suicide attempt [Unknown]
  - Mental disorder [Unknown]
  - Sleep disorder [Fatal]
